FAERS Safety Report 9970008 (Version 1)
Quarter: 2014Q1

REPORT INFORMATION
  Report Type: Spontaneous
  Country: NL (occurrence: NL)
  Receive Date: 20140306
  Receipt Date: 20140306
  Transmission Date: 20141002
  Serious: No
  Sender: FDA-Public Use
  Company Number: NL-ELI_LILLY_AND_COMPANY-NL201403000188

PATIENT
  Age: 33 Year
  Sex: Female
  Weight: 53 kg

DRUGS (9)
  1. ZYPREXA [Suspect]
     Indication: ANGER
     Dosage: 10 MG, QD
     Route: 065
     Dates: start: 20030506, end: 20130716
  2. ZYPREXA [Suspect]
     Indication: SLEEP DISORDER
  3. ZYPREXA [Suspect]
     Indication: ANXIETY
  4. CITALOPRAM [Suspect]
     Indication: ANGER
     Dosage: 40 MG, BID
     Route: 065
     Dates: start: 20030610
  5. CITALOPRAM [Suspect]
     Indication: SLEEP DISORDER
  6. CITALOPRAM [Suspect]
     Indication: ANXIETY
  7. LORMETAZEPAM [Suspect]
     Indication: ANGER
     Dosage: 2 MG, QD
     Route: 065
     Dates: start: 20030510, end: 20121218
  8. LORMETAZEPAM [Suspect]
     Indication: SLEEP DISORDER
  9. LORMETAZEPAM [Suspect]
     Indication: ANXIETY

REACTIONS (23)
  - Haematoma [Not Recovered/Not Resolved]
  - Anxiety [Not Recovered/Not Resolved]
  - Anger [Not Recovered/Not Resolved]
  - Influenza like illness [Not Recovered/Not Resolved]
  - Dyspnoea [Not Recovered/Not Resolved]
  - Visual impairment [Not Recovered/Not Resolved]
  - Lymphadenopathy [Not Recovered/Not Resolved]
  - Nasopharyngitis [Not Recovered/Not Resolved]
  - Neck pain [Not Recovered/Not Resolved]
  - Pain in jaw [Not Recovered/Not Resolved]
  - Oral disorder [Not Recovered/Not Resolved]
  - Pruritus [Not Recovered/Not Resolved]
  - Gingival disorder [Not Recovered/Not Resolved]
  - Feeling jittery [Not Recovered/Not Resolved]
  - Visual acuity reduced [Not Recovered/Not Resolved]
  - Pain in extremity [Not Recovered/Not Resolved]
  - Paraesthesia [Not Recovered/Not Resolved]
  - Hyperhidrosis [Not Recovered/Not Resolved]
  - Temperature intolerance [Not Recovered/Not Resolved]
  - Memory impairment [Not Recovered/Not Resolved]
  - Feeling abnormal [Unknown]
  - Dizziness [Not Recovered/Not Resolved]
  - Off label use [Unknown]
